FAERS Safety Report 19375062 (Version 1)
Quarter: 2021Q2

REPORT INFORMATION
  Report Type: Report from Study
  Country: US (occurrence: US)
  Receive Date: 20210604
  Receipt Date: 20210604
  Transmission Date: 20210717
  Serious: Yes (Death, Hospitalization, Other)
  Sender: FDA-Public Use
  Company Number: US-TAKEDA-US201504299

PATIENT
  Age: 67 Year
  Sex: Male
  Weight: 96 kg

DRUGS (2)
  1. VELAGLUCERASE ALFA [Suspect]
     Active Substance: VELAGLUCERASE ALFA
     Indication: GAUCHER^S DISEASE
     Dosage: 6000 INTERNATIONAL UNIT, Q2WEEKS
     Route: 041
     Dates: start: 20131113
  2. VELAGLUCERASE ALFA [Suspect]
     Active Substance: VELAGLUCERASE ALFA
     Dosage: 6000 INTERNATIONAL UNIT, MONTHLY
     Route: 042
     Dates: start: 20141113

REACTIONS (2)
  - Death [Fatal]
  - Haemolytic anaemia [Unknown]

NARRATIVE: CASE EVENT DATE: 201412
